FAERS Safety Report 5576332-0 (Version None)
Quarter: 2007Q4

REPORT INFORMATION
  Report Type: 
  Country: None (occurrence: None)
  Receive Date: 20071228
  Receipt Date: 20071217
  Transmission Date: 20080405
  Serious: Yes (Other)
  Sender: FDA-Public Use
  Company Number: BR-ROCHE-537704

PATIENT
  Age: 17 Year
  Sex: Male
  Weight: 59 kg

DRUGS (3)
  1. ROACUTAN [Suspect]
     Indication: ACNE
     Route: 048
     Dates: start: 20070901, end: 20071130
  2. BENZOYL PEROXIDE [Concomitant]
     Indication: ACNE
     Route: 061
  3. SUNSCREEN NOS [Concomitant]
     Indication: ACNE
     Dosage: DRUG NAME: SUNSCREEN AND SOAP
     Route: 061

REACTIONS (1)
  - COAGULOPATHY [None]
